FAERS Safety Report 8308448-X (Version None)
Quarter: 2012Q2

REPORT INFORMATION
  Report Type: 
  Country: None (occurrence: None)
  Receive Date: 20120420
  Receipt Date: 20120411
  Transmission Date: 20120825
  Serious: Yes (Hospitalization)
  Sender: FDA-Public Use
  Company Number: 132605

PATIENT
  Sex: Male

DRUGS (2)
  1. IDARUBICIN HCL [Suspect]
     Indication: ACUTE PROMYELOCYTIC LEUKAEMIA
     Dosage: TOTAL DOSE 99 MG/M2
  2. CYTARABINE [Suspect]

REACTIONS (2)
  - BONE PAIN [None]
  - CHRONIC MYELOMONOCYTIC LEUKAEMIA [None]
